FAERS Safety Report 5805481-4 (Version None)
Quarter: 2008Q3

REPORT INFORMATION
  Report Type: 
  Country: None (occurrence: None)
  Receive Date: 20080708
  Receipt Date: 20080708
  Transmission Date: 20090109
  Serious: Yes (Death)
  Sender: FDA-Public Use
  Company Number: None

PATIENT
  Age: 89 Year
  Sex: Male
  Weight: 74.8435 kg

DRUGS (1)
  1. DIGITEK 0.25 [Suspect]
     Indication: ATRIAL FIBRILLATION
     Dosage: 1/2 TAB EVERY DAY PO
     Route: 048
     Dates: start: 20070115, end: 20080401

REACTIONS (3)
  - ABDOMINAL PAIN UPPER [None]
  - ARRHYTHMIA [None]
  - NAUSEA [None]
